FAERS Safety Report 8548346-X (Version None)
Quarter: 2012Q3

REPORT INFORMATION
  Report Type: 
  Country: None (occurrence: None)
  Receive Date: 20120730
  Receipt Date: 20120719
  Transmission Date: 20120928
  Serious: Yes (Hospitalization)
  Sender: FDA-Public Use
  Company Number: US-JNJFOC-20091107583

PATIENT
  Sex: Female
  Weight: 90.72 kg

DRUGS (3)
  1. COMBIVIR [Concomitant]
     Indication: HIV INFECTION
     Route: 048
     Dates: start: 20091013, end: 20091109
  2. PREZISTA [Suspect]
     Indication: HIV INFECTION
     Route: 048
     Dates: start: 20091013, end: 20091109
  3. NORVIR [Concomitant]
     Indication: HIV INFECTION
     Route: 048
     Dates: start: 20091013, end: 20091111

REACTIONS (2)
  - MATERNAL EXPOSURE DURING PREGNANCY [None]
  - IMMINENT ABORTION [None]
